FAERS Safety Report 6197049-8 (Version None)
Quarter: 2009Q2

REPORT INFORMATION
  Report Type: 
  Country: None (occurrence: None)
  Receive Date: 20090520
  Receipt Date: 20090515
  Transmission Date: 20091009
  Serious: Yes (Other)
  Sender: FDA-Public Use
  Company Number: US-WYE-H09372609

PATIENT
  Sex: Male
  Weight: 92.16 kg

DRUGS (6)
  1. CORDARONE [Suspect]
     Indication: ATRIAL FIBRILLATION
     Route: 048
     Dates: end: 20081001
  2. CORDARONE [Suspect]
     Route: 048
     Dates: start: 20081001, end: 20090101
  3. METOPROLOL [Concomitant]
  4. LEVOXYL [Concomitant]
     Indication: THYROID DISORDER
  5. WARFARIN SODIUM [Concomitant]
  6. ASPIRIN [Concomitant]
     Dosage: 81 MG
     Route: 065

REACTIONS (9)
  - BLINDNESS TRANSIENT [None]
  - DYSGEUSIA [None]
  - FOOD CRAVING [None]
  - HEPATITIS [None]
  - MUSCLE SPASMS [None]
  - NIGHT SWEATS [None]
  - OEDEMA [None]
  - URTICARIA [None]
  - WEIGHT INCREASED [None]
